FAERS Safety Report 14607993 (Version 1)
Quarter: 2018Q1

REPORT INFORMATION
  Report Type: Report from Study
  Country: ZA (occurrence: ZA)
  Receive Date: 20180307
  Receipt Date: 20180307
  Transmission Date: 20180509
  Serious: Yes (Hospitalization)
  Sender: FDA-Public Use
  Company Number: PHHY2018ZA035608

PATIENT
  Sex: Male

DRUGS (3)
  1. CO-ZOMEVEK [Suspect]
     Active Substance: HYDROCHLOROTHIAZIDE\VALSARTAN
     Indication: HYPERTENSION
     Dosage: 1 DF (HYDROCHLOROTHIAZIDE 12.5 MG AND VALSARTAN 160 MG)
     Route: 048
     Dates: start: 201709, end: 201802
  2. TEGRETOL XR [Suspect]
     Active Substance: CARBAMAZEPINE
     Indication: EPILEPSY
     Dosage: 200 MG, UNK
     Route: 048
     Dates: start: 201710
  3. CO-TAREG [Suspect]
     Active Substance: HYDROCHLOROTHIAZIDE\VALSARTAN
     Indication: HYPERTENSION
     Dosage: 1 DF (HYDROCHOLOROTHIAZIDE 12.5 MG AND VALSARTAN 80 MG)
     Route: 048
     Dates: start: 201802

REACTIONS (2)
  - Peripheral swelling [Recovered/Resolved]
  - Pain in extremity [Unknown]
